FAERS Safety Report 25550413 (Version 2)
Quarter: 2025Q3

REPORT INFORMATION
  Report Type: Spontaneous
  Country: EU (occurrence: EU)
  Receive Date: 20250714
  Receipt Date: 20250730
  Transmission Date: 20251021
  Serious: Yes (Life-Threatening, Hospitalization)
  Sender: TEVA
  Company Number: EU-TEVA-VS-3350559

PATIENT
  Age: 57 Year
  Sex: Female

DRUGS (3)
  1. ALPRAZOLAM [Suspect]
     Active Substance: ALPRAZOLAM
     Indication: Poisoning deliberate
     Route: 065
  2. PIROXICAM [Suspect]
     Active Substance: PIROXICAM
     Indication: Poisoning deliberate
     Route: 065
  3. TRAMADOL [Suspect]
     Active Substance: TRAMADOL
     Indication: Poisoning deliberate
     Route: 065

REACTIONS (10)
  - Poisoning deliberate [Unknown]
  - Coma [Recovered/Resolved]
  - Air embolism [Recovered/Resolved]
  - Haemodynamic instability [Recovered/Resolved]
  - Circulatory collapse [Recovered/Resolved]
  - Hypotension [Recovered/Resolved]
  - Right ventricular dysfunction [Recovered/Resolved]
  - Cor pulmonale acute [Recovered/Resolved]
  - Paradoxical embolism [Recovered/Resolved]
  - Cardiac arrest [Recovered/Resolved]
